FAERS Safety Report 8368383-8 (Version None)
Quarter: 2012Q2

REPORT INFORMATION
  Report Type: 
  Country: None (occurrence: None)
  Receive Date: 20120517
  Receipt Date: 20120507
  Transmission Date: 20120825
  Serious: Yes (Other)
  Sender: FDA-Public Use
  Company Number: US-ELI_LILLY_AND_COMPANY-US201110002110

PATIENT
  Sex: Female
  Weight: 56 kg

DRUGS (15)
  1. FORTEO [Suspect]
     Dosage: 20 UG, QOD
     Route: 065
  2. METOPROLOL [Concomitant]
  3. FORTEO [Suspect]
     Indication: OSTEOPOROSIS
     Dosage: 20 UG, QD
     Route: 065
     Dates: start: 20020801
  4. FORTEO [Suspect]
     Dosage: 20 UG, QD
     Route: 065
  5. PREDNISOLONE [Concomitant]
     Route: 047
  6. FORTEO [Suspect]
     Dosage: 20 UG, QOD
     Route: 065
     Dates: start: 20120101
  7. LOTREL [Concomitant]
  8. FORTEO [Suspect]
     Dosage: 20 UG, QOD
  9. VITAMIN D [Concomitant]
  10. PRILOSEC [Concomitant]
  11. LOVASTATIN [Concomitant]
  12. CALCIUM [Concomitant]
  13. COUMADIN [Concomitant]
     Dosage: UNK
  14. DICLOFENAC SODIUM [Concomitant]
     Route: 047
  15. AMBIEN [Concomitant]

REACTIONS (17)
  - ABASIA [None]
  - MEDICATION ERROR [None]
  - LOSS OF CONSCIOUSNESS [None]
  - JOINT SWELLING [None]
  - PAIN [None]
  - MUSCLE SPASMS [None]
  - HEADACHE [None]
  - ARTHRALGIA [None]
  - PAIN IN EXTREMITY [None]
  - BONE PAIN [None]
  - MYALGIA [None]
  - GAIT DISTURBANCE [None]
  - ASTHENIA [None]
  - RETINAL DISORDER [None]
  - RETINAL INJURY [None]
  - VISUAL IMPAIRMENT [None]
  - FEELING ABNORMAL [None]
